FAERS Safety Report 21073542 (Version 2)
Quarter: 2022Q3

REPORT INFORMATION
  Report Type: Spontaneous
  Country: US (occurrence: US)
  Receive Date: 20220713
  Receipt Date: 20220725
  Transmission Date: 20221026
  Serious: No
  Sender: FDA-Public Use
  Company Number: US-NOVARTISTESTPH-NVSC2022US158351

PATIENT
  Sex: Male

DRUGS (1)
  1. VOTRIENT [Suspect]
     Active Substance: PAZOPANIB HYDROCHLORIDE
     Indication: Illness
     Dosage: 800 MG, QD
     Route: 048
     Dates: start: 20220614

REACTIONS (4)
  - Peripheral swelling [Unknown]
  - Blister [Unknown]
  - Temperature intolerance [Unknown]
  - Rash [Unknown]
